FAERS Safety Report 8325700-2 (Version None)
Quarter: 2012Q2

REPORT INFORMATION
  Report Type: 
  Country: None (occurrence: None)
  Receive Date: 20120501
  Receipt Date: 20120427
  Transmission Date: 20120825
  Serious: Yes (Death, Hospitalization)
  Sender: FDA-Public Use
  Company Number: US-CTI_01464_2012

PATIENT
  Sex: Male
  Weight: 0.8 kg

DRUGS (1)
  1. CUROSURF [Suspect]
     Indication: PRODUCT USED FOR UNKNOWN INDICATION
     Dosage: DF
     Dates: start: 20120401, end: 20120401

REACTIONS (1)
  - PULMONARY INTERSTITIAL EMPHYSEMA SYNDROME [None]
